FAERS Safety Report 16039609 (Version 1)
Quarter: 2019Q2

REPORT INFORMATION
  Report Type: Spontaneous
  Country: US (occurrence: US)
  Receive Date: 20190305
  Receipt Date: 20190305
  Transmission Date: 20190711
  Serious: No
  Sender: FDA-Public Use
  Company Number: None

PATIENT
  Age: 52 Year
  Sex: Female
  Weight: 94.5 kg

DRUGS (3)
  1. EMGALITY [Suspect]
     Active Substance: GALCANEZUMAB-GNLM
     Indication: MIGRAINE
     Dosage: ?          QUANTITY:1 INJECTION(S);OTHER FREQUENCY:EVERY 28 DAYS;OTHER ROUTE:INJECTED IN THIGH?
     Dates: start: 20190104, end: 20190301
  2. EMGALITY [Suspect]
     Active Substance: GALCANEZUMAB-GNLM
     Indication: MIGRAINE
     Dosage: ?          QUANTITY:1 INJECTION(S);OTHER FREQUENCY:EVERY 28 DAYS;OTHER ROUTE:INJECTION IN THIGH?
     Dates: start: 20190104, end: 20190301
  3. ZOMIG [Concomitant]
     Active Substance: ZOLMITRIPTAN

REACTIONS (6)
  - Scab [None]
  - Injection site inflammation [None]
  - Injection site pruritus [None]
  - Injection site warmth [None]
  - Skin discolouration [None]
  - Blister [None]

NARRATIVE: CASE EVENT DATE: 20190302
